FAERS Safety Report 21932206 (Version 1)
Quarter: 2023Q1

REPORT INFORMATION
  Report Type: Report from Study
  Country: US (occurrence: None)
  Receive Date: 20230131
  Receipt Date: 20230131
  Transmission Date: 20230417
  Serious: Yes (Death)
  Sender: FDA-Public Use
  Company Number: 2023A024849

PATIENT

DRUGS (17)
  1. TAGRISSO [Suspect]
     Active Substance: OSIMERTINIB
     Route: 048
  2. ONDANSETRON [Concomitant]
     Active Substance: ONDANSETRON
  3. IMODIUM [Concomitant]
     Active Substance: LOPERAMIDE HYDROCHLORIDE
  4. GABAPENTIN [Concomitant]
     Active Substance: GABAPENTIN
  5. SIMVASTATIN [Concomitant]
     Active Substance: SIMVASTATIN
  6. METOPROLOL SUCCINATE [Concomitant]
     Active Substance: METOPROLOL SUCCINATE
  7. B-COMPLEX PLUS VITAMIN C [Concomitant]
  8. PROBIOTICS NOS [Concomitant]
     Active Substance: PROBIOTICS NOS
  9. SYNTHROID [Concomitant]
     Active Substance: LEVOTHYROXINE SODIUM
  10. FENOFIBRATE [Concomitant]
     Active Substance: FENOFIBRATE
  11. ASPIRIN [Concomitant]
     Active Substance: ASPIRIN
  12. HYDROCHLOROTHIAZIDE\VALSARTAN [Concomitant]
     Active Substance: HYDROCHLOROTHIAZIDE\VALSARTAN
  13. CALCIUM PLUS D3 [Concomitant]
  14. VITAMINS [Concomitant]
     Active Substance: VITAMINS
  15. CRANBERRY [Concomitant]
     Active Substance: CRANBERRY
  16. HYDROCHLOROTHIAZIDE\SPIRONOLACTONE [Concomitant]
     Active Substance: HYDROCHLOROTHIAZIDE\SPIRONOLACTONE
  17. GARLIC [Concomitant]
     Active Substance: GARLIC

REACTIONS (1)
  - Death [Fatal]
